FAERS Safety Report 22114945 (Version 1)
Quarter: 2023Q1

REPORT INFORMATION
  Report Type: Spontaneous
  Country: CN (occurrence: CN)
  Receive Date: 20230320
  Receipt Date: 20230320
  Transmission Date: 20230417
  Serious: Yes (Other)
  Sender: FDA-Public Use
  Company Number: CN-PFIZER INC-PV202300049345

PATIENT
  Age: 34 Year
  Sex: Female
  Weight: 72 kg

DRUGS (1)
  1. CARBOPROST TROMETHAMINE [Suspect]
     Active Substance: CARBOPROST TROMETHAMINE
     Indication: Prophylaxis
     Dosage: 250 UG, 1X/DAY
     Route: 030
     Dates: start: 20230310, end: 20230310

REACTIONS (5)
  - Diarrhoea [Recovered/Resolved]
  - Vomiting [Recovered/Resolved]
  - Abdominal discomfort [Recovered/Resolved]
  - Off label use [Unknown]
  - Drug effective for unapproved indication [Unknown]

NARRATIVE: CASE EVENT DATE: 20230310
